FAERS Safety Report 16053673 (Version 3)
Quarter: 2019Q2

REPORT INFORMATION
  Report Type: Spontaneous
  Country: FR (occurrence: FR)
  Receive Date: 20190308
  Receipt Date: 20190610
  Transmission Date: 20190711
  Serious: Yes (Other)
  Sender: FDA-Public Use
  Company Number: FR-MYLANLABS-2019M1021443

PATIENT
  Age: 63 Year
  Sex: Female

DRUGS (3)
  1. TAMOXIFEN [Suspect]
     Active Substance: TAMOXIFEN
     Indication: BREAST CANCER
     Dosage: 1 DOSAGE FORM, QD
     Route: 048
     Dates: start: 201607, end: 201807
  2. TAMOXIFEN [Suspect]
     Active Substance: TAMOXIFEN
     Dosage: 0.5 DOSAGE FORM, AM,0.5 DOSAGE FORM, QD, IN THE MORNING
     Route: 048
  3. LERCAN [Concomitant]
     Active Substance: LERCANIDIPINE
     Indication: HYPERTENSION
     Dosage: UNK
     Route: 048

REACTIONS (11)
  - Hypoaesthesia [Recovered/Resolved]
  - Arthralgia [Not Recovered/Not Resolved]
  - Sudden hearing loss [Recovered/Resolved]
  - Wrong technique in product usage process [Unknown]
  - Muscle spasms [Recovered/Resolved]
  - Skin papilloma [Not Recovered/Not Resolved]
  - Hot flush [Not Recovered/Not Resolved]
  - Constipation [Not Recovered/Not Resolved]
  - Fatigue [Not Recovered/Not Resolved]
  - Pain in extremity [Not Recovered/Not Resolved]
  - Hypotension [Recovered/Resolved]

NARRATIVE: CASE EVENT DATE: 201610
